FAERS Safety Report 8961405 (Version 1)
Quarter: 2012Q4

REPORT INFORMATION
  Report Type: Report from Study
  Country: DE (occurrence: DE)
  Receive Date: 20121213
  Receipt Date: 20121213
  Transmission Date: 20130627
  Serious: Yes (Hospitalization)
  Sender: FDA-Public Use
  Company Number: DE-ABBOTT-12P-062-1019942-00

PATIENT
  Sex: Male
  Weight: 96 kg

DRUGS (4)
  1. HUMIRA [Suspect]
     Indication: PSORIASIS
     Route: 058
     Dates: start: 20100615
  2. OMEPRAZOL [Concomitant]
     Indication: GASTRIC DISORDER
     Route: 048
     Dates: start: 20121008
  3. OMEPRAZOL [Concomitant]
     Indication: PROPHYLAXIS
  4. FOSTER [Concomitant]
     Indication: ASTHMA

REACTIONS (1)
  - Arrhythmia [Recovered/Resolved]
